FAERS Safety Report 8701559 (Version 3)
Quarter: 2012Q4

REPORT INFORMATION
  Report Type: 
  Country: FR (occurrence: FR)
  Receive Date: 20120803
  Receipt Date: 20120927
  Transmission Date: 20130627
  Serious: Yes (Hospitalization)
  Sender: FDA-Public Use
  Company Number: FR-009507513-1208FRA000335

PATIENT
  Age: 41 Year
  Sex: Female

DRUGS (3)
  1. ISENTRESS [Suspect]
     Indication: HIV INFECTION
     Dosage: 1 DF, bid
     Route: 048
     Dates: start: 20120521, end: 20120704
  2. TRUVADA [Concomitant]
     Indication: HIV INFECTION
     Dosage: 1 DF, qd
     Route: 048
  3. AVLOCARDYL [Concomitant]
     Dosage: 1 DF, UNK
     Route: 048

REACTIONS (3)
  - Drug reaction with eosinophilia and systemic symptoms [Recovered/Resolved]
  - Drug eruption [Recovered/Resolved]
  - Oedema [Recovered/Resolved]
